FAERS Safety Report 25653496 (Version 1)
Quarter: 2025Q3

REPORT INFORMATION
  Report Type: Report from Study
  Country: US (occurrence: US)
  Receive Date: 20250807
  Receipt Date: 20250807
  Transmission Date: 20251021
  Serious: No
  Sender: SUNOVION
  Company Number: US-SUMITOMO PHARMA SWITZERLAND GMBH-2025SPA009017

PATIENT
  Age: 69 Year
  Sex: Male

DRUGS (18)
  1. ORGOVYX [Suspect]
     Active Substance: RELUGOLIX
     Indication: Prostate cancer
     Route: 048
  2. ELIQUIS [Concomitant]
     Active Substance: APIXABAN
  3. MONTELUKAST [Concomitant]
     Active Substance: MONTELUKAST
  4. TAMSULOSIN [Concomitant]
     Active Substance: TAMSULOSIN
  5. ADVAIR HFA [Concomitant]
     Active Substance: FLUTICASONE PROPIONATE\SALMETEROL XINAFOATE
  6. VENTOLIN [Concomitant]
     Active Substance: ALBUTEROL SULFATE
  7. DOFETILIDE [Concomitant]
     Active Substance: DOFETILIDE
  8. POTASSIUM [Concomitant]
     Active Substance: POTASSIUM
  9. FUROSEMIDE [Concomitant]
     Active Substance: FUROSEMIDE
  10. IBUPROFEN [Concomitant]
     Active Substance: IBUPROFEN
  11. METOPROLOL TARTRATE [Concomitant]
     Active Substance: METOPROLOL TARTRATE
  12. FIRMAGON [Concomitant]
     Active Substance: DEGARELIX ACETATE
  13. METFORMIN [Concomitant]
     Active Substance: METFORMIN HYDROCHLORIDE
  14. LUPRON [Concomitant]
     Active Substance: LEUPROLIDE ACETATE
  15. PROAIR HFA [Concomitant]
     Active Substance: ALBUTEROL SULFATE
  16. OZEMPIC [Concomitant]
     Active Substance: SEMAGLUTIDE
  17. NUBEQA [Concomitant]
     Active Substance: DAROLUTAMIDE
     Dosage: 300 MG, BID
  18. REPATHA [Concomitant]
     Active Substance: EVOLOCUMAB

REACTIONS (2)
  - Fatigue [Unknown]
  - Incorrect dose administered [Recovered/Resolved]
